FAERS Safety Report 6928938-1 (Version None)
Quarter: 2010Q3

REPORT INFORMATION
  Report Type: 
  Country: None (occurrence: None)
  Receive Date: 20100817
  Receipt Date: 20100803
  Transmission Date: 20110219
  Serious: Yes (Hospitalization)
  Sender: FDA-Public Use
  Company Number: GB-MYLANLABS-2010S1014097

PATIENT
  Age: 41 Year
  Sex: Male

DRUGS (8)
  1. FUROSEMIDE [Suspect]
     Indication: CONGESTIVE CARDIOMYOPATHY
  2. INDOMETHACIN [Suspect]
     Indication: GOUT
  3. AMIODARONE [Concomitant]
     Indication: CONGESTIVE CARDIOMYOPATHY
  4. BISOPROLOL [Concomitant]
     Indication: CONGESTIVE CARDIOMYOPATHY
  5. METOLAZONE [Concomitant]
     Indication: FLUID RETENTION
  6. RAMIPRIL [Concomitant]
     Indication: CONGESTIVE CARDIOMYOPATHY
  7. SPIRONOLACTONE [Concomitant]
     Indication: FLUID RETENTION
  8. WARFARIN [Concomitant]
     Indication: CONGESTIVE CARDIOMYOPATHY

REACTIONS (4)
  - DEAFNESS [None]
  - FLUID RETENTION [None]
  - GOUT [None]
  - RENAL FAILURE CHRONIC [None]
